FAERS Safety Report 8378057-5 (Version None)
Quarter: 2012Q2

REPORT INFORMATION
  Report Type: 
  Country: None (occurrence: None)
  Receive Date: 20120522
  Receipt Date: 20120518
  Transmission Date: 20120825
  Serious: Yes (Hospitalization, Other)
  Sender: FDA-Public Use
  Company Number: JP-ROCHE-1061920

PATIENT
  Sex: Male
  Weight: 57.4 kg

DRUGS (4)
  1. COPEGUS [Suspect]
     Indication: HEPATITIS C
     Route: 048
     Dates: start: 20120229
  2. BI 201335 (HCV PROTEASE INHIBITOR) [Suspect]
     Indication: HEPATITIS C
     Dosage: DOSE REDUCED
     Route: 048
     Dates: start: 20120229, end: 20120412
  3. PEGASYS [Suspect]
     Indication: HEPATITIS C
     Route: 058
     Dates: start: 20120229
  4. BI 201335 (HCV PROTEASE INHIBITOR) [Suspect]
     Dates: start: 20120413

REACTIONS (4)
  - STOMATITIS [None]
  - RASH [None]
  - DIARRHOEA [None]
  - DECREASED APPETITE [None]
